FAERS Safety Report 8792995 (Version 3)
Quarter: 2012Q4

REPORT INFORMATION
  Report Type: 
  Country: US (occurrence: US)
  Receive Date: 20120918
  Receipt Date: 20121128
  Transmission Date: 20130627
  Serious: Yes (Hospitalization)
  Sender: FDA-Public Use
  Company Number: US-VERTEX PHARMACEUTICAL INC.-2012-021209

PATIENT
  Sex: Male
  Weight: 70.3 kg

DRUGS (11)
  1. VX-950 (TELAPREVIR) [Suspect]
     Indication: HEPATITIS C
     Dosage: 750 mg, tid
     Route: 048
     Dates: start: 2012, end: 20121004
  2. PEGASYS [Concomitant]
     Indication: HEPATITIS C
     Dosage: 180 ?g, weekly
     Route: 058
     Dates: start: 2012, end: 20121004
  3. RIBASPHERE [Concomitant]
     Indication: HEPATITIS C
     Dosage: 600 mg, bid
     Route: 048
     Dates: start: 2012, end: 20121004
  4. LEVOTHYROXINE [Concomitant]
     Dosage: 50 ?g, qd
  5. SULPHAMETHOXAZOLE-TMP [Concomitant]
     Dosage: UNK, qd
  6. ASPIRIN (E.C.) [Concomitant]
     Dosage: 81 mg, qd
  7. CVS OMEPRAZOLE [Concomitant]
     Dosage: 20 mg, qd
  8. CYCLOSPORINE [Concomitant]
     Dosage: 25 mg, bid
  9. HUMALOG [Concomitant]
     Dosage: 100 UNITS/ML
  10. AMLODIPINE BESYLATE [Concomitant]
     Dosage: 10 mg, qd
  11. LANTUS [Concomitant]
     Dosage: 100 UNITS/ML vial

REACTIONS (3)
  - Malaise [Unknown]
  - Off label use [Unknown]
  - Drug ineffective [Unknown]
